FAERS Safety Report 22611113 (Version 2)
Quarter: 2023Q2

REPORT INFORMATION
  Report Type: Spontaneous
  Country: CO (occurrence: CO)
  Receive Date: 20230616
  Receipt Date: 20230630
  Transmission Date: 20230722
  Serious: Yes (Hospitalization, Other)
  Sender: FDA-Public Use
  Company Number: CO-NOVOPROD-1076890

PATIENT
  Age: 50 Year
  Sex: Male
  Weight: 102 kg

DRUGS (2)
  1. APIDRA [Concomitant]
     Active Substance: INSULIN GLULISINE
     Indication: Type 2 diabetes mellitus
     Dosage: 4 IU, QD
     Route: 058
     Dates: start: 2023
  2. NOVOLIN N [Suspect]
     Active Substance: INSULIN HUMAN
     Indication: Type 2 diabetes mellitus
     Dosage: 40 IU, QD
     Route: 058
     Dates: start: 20160525, end: 20230519

REACTIONS (1)
  - Myocardial infarction [Recovered/Resolved]

NARRATIVE: CASE EVENT DATE: 20230520
